FAERS Safety Report 7908548-X (Version None)
Quarter: 2011Q4

REPORT INFORMATION
  Report Type: 
  Country: None (occurrence: None)
  Receive Date: 20111111
  Receipt Date: 20111110
  Transmission Date: 20120403
  Serious: Yes (Other)
  Sender: FDA-Public Use
  Company Number: US-PFIZER INC-2011276246

PATIENT
  Age: 80 Year
  Sex: Male

DRUGS (7)
  1. GEODON [Suspect]
     Dosage: UNK
     Route: 030
  2. GEODON [Suspect]
     Indication: DEMENTIA ALZHEIMER'S TYPE
     Dosage: 10 MG, DAILY
     Route: 030
  3. GEODON [Suspect]
     Indication: PSYCHOTIC BEHAVIOUR
     Dosage: 60 MG, DAILY
     Route: 030
  4. NEURONTIN [Concomitant]
     Dosage: UNK
  5. NAMENDA [Concomitant]
     Dosage: UNK
  6. DEPAKOTE [Concomitant]
     Dosage: UNK
  7. ARICEPT [Concomitant]
     Dosage: UNK

REACTIONS (1)
  - OXYGEN SATURATION DECREASED [None]
